FAERS Safety Report 4803852-6 (Version None)
Quarter: 2005Q4

REPORT INFORMATION
  Report Type: 
  Country: None (occurrence: None)
  Receive Date: 20051014
  Receipt Date: 20050928
  Transmission Date: 20060501
  Serious: Yes (Hospitalization)
  Sender: FDA-Public Use
  Company Number: 218368

PATIENT
  Age: 58 Year
  Sex: Male
  Weight: 62 kg

DRUGS (3)
  1. AVASTIN(BEVACIZUMAB) PWDR + SOLVENT,INFUSION SOLN, 100MG [Suspect]
     Indication: COLORECTAL CANCER
     Dosage: 355 MG, Q2W, INTRAVENOUS
     Route: 042
     Dates: start: 20050718
  2. CAPECITABINE (CAPECITABINE) [Suspect]
     Indication: COLORECTAL CANCER
     Dosage: 1618.5 MG, BID, ORAL
     Route: 048
     Dates: start: 20050718
  3. OXALIPLATIN (OXALIPLATIN) [Suspect]
     Indication: COLORECTAL CANCER
     Dosage: 100 MG, Q2W, INTRAVENOUS
     Route: 042
     Dates: start: 20050718

REACTIONS (1)
  - PANCREATITIS ACUTE [None]
